FAERS Safety Report 6612718-0 (Version None)
Quarter: 2010Q1

REPORT INFORMATION
  Report Type: 
  Country: None (occurrence: None)
  Receive Date: 20100223
  Receipt Date: 20100208
  Transmission Date: 20100710
  Serious: Yes (Hospitalization)
  Sender: FDA-Public Use
  Company Number: THQ2010A00433

PATIENT
  Age: 49 Year
  Sex: Female

DRUGS (7)
  1. ACTOS [Suspect]
     Indication: TYPE 2 DIABETES MELLITUS
     Dosage: 15 MG (15 MG, 1 IN 1 D)
     Dates: start: 20091112, end: 20091201
  2. ACTOS [Suspect]
     Indication: TYPE 2 DIABETES MELLITUS
     Dosage: 15 MG (15 MG, 1 IN 1 D)
     Dates: start: 20091203
  3. BYETTA [Suspect]
     Indication: TYPE 2 DIABETES MELLITUS
     Dosage: 10 MCG (5 MCG, 2 IN 1 D) SUBCUTANEOUS ; 20 MCG (10 MCG,2 IN 1 D) SUBCUTANEOUS
     Route: 058
     Dates: start: 20070524, end: 20070621
  4. BYETTA [Suspect]
     Indication: TYPE 2 DIABETES MELLITUS
     Dosage: 10 MCG (5 MCG, 2 IN 1 D) SUBCUTANEOUS ; 20 MCG (10 MCG,2 IN 1 D) SUBCUTANEOUS
     Route: 058
     Dates: start: 20070622, end: 20091201
  5. BYETTA [Suspect]
     Indication: TYPE 2 DIABETES MELLITUS
     Dosage: 10 MCG (5 MCG, 2 IN 1 D) SUBCUTANEOUS ; 20 MCG (10 MCG,2 IN 1 D) SUBCUTANEOUS
     Route: 058
     Dates: start: 20091203
  6. GLUCOPHAGE [Suspect]
     Indication: TYPE 2 DIABETES MELLITUS
     Dosage: 2.55 GM (2.55 GM, 1 IN 1 D)
     Dates: start: 20060501, end: 20091201
  7. GLUCOPHAGE [Suspect]
     Indication: TYPE 2 DIABETES MELLITUS
     Dosage: 2.55 GM (2.55 GM, 1 IN 1 D)
     Dates: start: 20091203

REACTIONS (2)
  - ABDOMINAL PAIN LOWER [None]
  - SALPINGO-OOPHORECTOMY BILATERAL [None]
